FAERS Safety Report 20012760 (Version 4)
Quarter: 2022Q4

REPORT INFORMATION
  Report Type: Report from Study
  Country: AR (occurrence: AR)
  Receive Date: 20211029
  Receipt Date: 20221125
  Transmission Date: 20230113
  Serious: Yes (Hospitalization)
  Sender: FDA-Public Use
  Company Number: AR-TAKEDA-2021TUS066689

PATIENT
  Age: 15 Year
  Sex: Male

DRUGS (11)
  1. IDURSULFASE [Suspect]
     Active Substance: IDURSULFASE
     Indication: Mucopolysaccharidosis II
     Dosage: 0.4 MILLIGRAM/KILOGRAM, 1/WEEK
     Route: 042
     Dates: start: 20110909
  2. OMEPRAZOLE [Concomitant]
     Active Substance: OMEPRAZOLE
     Dosage: UNK
     Route: 048
  3. CLAVULANIC ACID [Concomitant]
     Active Substance: CLAVULANIC ACID
     Route: 048
  4. ALBUTEROL [Concomitant]
     Active Substance: ALBUTEROL
     Indication: Respiratory failure
     Dosage: UNK
     Route: 055
     Dates: start: 20190408
  5. BUDESONIDE [Concomitant]
     Active Substance: BUDESONIDE
     Indication: Respiratory failure
     Dosage: UNK
     Route: 055
     Dates: start: 20190408
  6. AMOXICILLIN [Concomitant]
     Active Substance: AMOXICILLIN
     Indication: Respiratory failure
     Dosage: UNK
     Route: 048
     Dates: start: 20190408
  7. BETAMETHASONE [Concomitant]
     Active Substance: BETAMETHASONE
     Indication: Respiratory failure
     Dosage: UNK
     Route: 042
     Dates: start: 20190408
  8. CIPROFLOXACIN [Concomitant]
     Active Substance: CIPROFLOXACIN
     Indication: Otorrhoea
     Dosage: UNK
     Route: 050
     Dates: start: 202004
  9. DEXAMETHASONE [Concomitant]
     Active Substance: DEXAMETHASONE
     Indication: Otorrhoea
     Dosage: UNK
     Route: 050
     Dates: start: 202004
  10. OTOSPORIN DEXA [Concomitant]
     Indication: Otorrhoea
     Dosage: UNK
     Route: 061
     Dates: start: 20200426
  11. METAMIZOLE SODIUM [Concomitant]
     Active Substance: METAMIZOLE SODIUM
     Dosage: UNK
     Route: 042
     Dates: start: 20211018

REACTIONS (1)
  - Sinus bradycardia [Recovered/Resolved]

NARRATIVE: CASE EVENT DATE: 20211018
